FAERS Safety Report 24185544 (Version 3)
Quarter: 2025Q1

REPORT INFORMATION
  Report Type: Spontaneous
  Country: US (occurrence: US)
  Receive Date: 20240807
  Receipt Date: 20250222
  Transmission Date: 20250408
  Serious: No
  Sender: SANOFI AVENTIS
  Company Number: US-SANOFI-02157999

PATIENT
  Age: 71 Year
  Sex: Female

DRUGS (3)
  1. TOUJEO [Suspect]
     Active Substance: INSULIN GLARGINE
     Indication: Latent autoimmune diabetes in adults
     Dosage: 6 IU, QD
     Route: 065
     Dates: start: 20240703, end: 20240703
  2. TOUJEO [Suspect]
     Active Substance: INSULIN GLARGINE
     Indication: Type 1 diabetes mellitus
     Dosage: INSTRUCTED TO INCREASE HER DOSAGE BY 2 UNITS DAILY
     Route: 065
     Dates: start: 20240704
  3. TOUJEO [Suspect]
     Active Substance: INSULIN GLARGINE
     Dosage: 24 TO 26 UNITS QD
     Route: 065

REACTIONS (4)
  - Malaise [Unknown]
  - Weight increased [Unknown]
  - Product storage error [Unknown]
  - Product temperature excursion issue [Unknown]

NARRATIVE: CASE EVENT DATE: 20240701
